FAERS Safety Report 10362863 (Version 1)
Quarter: 2014Q3

REPORT INFORMATION
  Report Type: Spontaneous
  Country: US (occurrence: US)
  Receive Date: 20140805
  Receipt Date: 20140805
  Transmission Date: 20150326
  Serious: No
  Sender: FDA-Public Use
  Company Number: US-MALLINCKRODT-T201402147

PATIENT
  Age: 46 Year
  Sex: Male
  Weight: 77.98 kg

DRUGS (2)
  1. PAMELOR [Suspect]
     Active Substance: NORTRIPTYLINE HYDROCHLORIDE
     Indication: ANXIETY
     Dosage: 25 MG, QD
     Route: 048
  2. LATUDA [Suspect]
     Active Substance: LURASIDONE HYDROCHLORIDE
     Indication: ANXIETY
     Dosage: 40 MG, SINGLE
     Route: 048

REACTIONS (5)
  - Off label use [Unknown]
  - Hypopnoea [Unknown]
  - Restlessness [Unknown]
  - Palpitations [Unknown]
  - Formication [Unknown]
